FAERS Safety Report 12777774 (Version 2)
Quarter: 2020Q4

REPORT INFORMATION
  Report Type: Spontaneous
  Country: US (occurrence: US)
  Receive Date: 20160924
  Receipt Date: 20201027
  Transmission Date: 20210113
  Serious: No
  Sender: FDA-Public Use
  Company Number: US-JAZZ-2016-US-010537

PATIENT
  Sex: Male

DRUGS (27)
  1. ADDERALL [Concomitant]
     Active Substance: AMPHETAMINE ASPARTATE\AMPHETAMINE SULFATE\DEXTROAMPHETAMINE SACCHARATE\DEXTROAMPHETAMINE SULFATE
  2. CLARITIN [Concomitant]
     Active Substance: LORATADINE
  3. LYRICA [Concomitant]
     Active Substance: PREGABALIN
  4. XYREM [Suspect]
     Active Substance: SODIUM OXYBATE
     Dosage: 4.5 G, BID
     Route: 048
     Dates: start: 201005, end: 2014
  5. LORTAB [HYDROCODONE BITARTRATE;PARACETAMOL;PROMETHAZINE HYDROCHLORIDE] [Concomitant]
     Active Substance: ACETAMINOPHEN\HYDROCODONE\PROMETHAZINE
  6. PROTONIX [Concomitant]
     Active Substance: PANTOPRAZOLE SODIUM
  7. XYREM [Suspect]
     Active Substance: SODIUM OXYBATE
     Dosage: 4.5 G, BID
     Route: 048
     Dates: start: 201511
  8. FLECTOR [Concomitant]
     Active Substance: DICLOFENAC EPOLAMINE
  9. LUNESTA [Concomitant]
     Active Substance: ESZOPICLONE
  10. CYMBALTA [Concomitant]
     Active Substance: DULOXETINE HYDROCHLORIDE
  11. NICOTROL [Concomitant]
     Active Substance: NICOTINE
  12. XANAX [Concomitant]
     Active Substance: ALPRAZOLAM
  13. FLONASE [Concomitant]
     Active Substance: FLUTICASONE PROPIONATE
  14. XYREM [Suspect]
     Active Substance: SODIUM OXYBATE
     Indication: CATAPLEXY
     Dosage: 3 G, BID
     Route: 048
     Dates: start: 201002, end: 201005
  15. RELPAX [Concomitant]
     Active Substance: ELETRIPTAN HYDROBROMIDE
  16. ROZEREM [Concomitant]
     Active Substance: RAMELTEON
  17. SONATA [Concomitant]
     Active Substance: ZALEPLON
  18. VIMPAT [Concomitant]
     Active Substance: LACOSAMIDE
  19. ATARAX [Concomitant]
     Active Substance: HYDROXYZINE HYDROCHLORIDE
  20. VOLTAREN [Concomitant]
     Active Substance: DICLOFENAC SODIUM
  21. XYREM [Suspect]
     Active Substance: SODIUM OXYBATE
     Indication: NARCOLEPSY
     Dosage: 2.25 G, BID
     Route: 048
     Dates: start: 201001, end: 201002
  22. IMITREX [Concomitant]
     Active Substance: SUMATRIPTAN SUCCINATE
  23. MAXALT [Concomitant]
     Active Substance: RIZATRIPTAN BENZOATE
  24. ATIVAN [Concomitant]
     Active Substance: LORAZEPAM
  25. EFFEXOR [Concomitant]
     Active Substance: VENLAFAXINE HYDROCHLORIDE
  26. TYLENOL WITH CODEINE [Concomitant]
     Active Substance: ACETAMINOPHEN\CODEINE PHOSPHATE
  27. ZANAFLEX [Concomitant]
     Active Substance: TIZANIDINE HYDROCHLORIDE

REACTIONS (2)
  - Pre-existing condition improved [Unknown]
  - Therapeutic response unexpected [Unknown]
